FAERS Safety Report 6447936-8 (Version None)
Quarter: 2009Q4

REPORT INFORMATION
  Report Type: 
  Country: None (occurrence: None)
  Receive Date: 20091120
  Receipt Date: 20091112
  Transmission Date: 20100525
  Serious: Yes (Hospitalization)
  Sender: FDA-Public Use
  Company Number: JP-JNJFOC-20091104187

PATIENT
  Age: 14 Year
  Sex: Male

DRUGS (3)
  1. CONCERTA [Suspect]
     Route: 048
     Dates: end: 20091104
  2. CONCERTA [Suspect]
     Indication: DRUG USE FOR UNKNOWN INDICATION
     Route: 048
     Dates: end: 20091104
  3. HORMONE PREPARATIONS INCLUDING ANTIHORMONE PREPARATIONS [Concomitant]
     Route: 065

REACTIONS (2)
  - ASTHENIA [None]
  - ENCEPHALOPATHY [None]
